FAERS Safety Report 10910384 (Version 1)
Quarter: 2015Q1

REPORT INFORMATION
  Report Type: Spontaneous
  Country: US (occurrence: US)
  Receive Date: 20150312
  Receipt Date: 20150312
  Transmission Date: 20150721
  Serious: No
  Sender: FDA-Public Use
  Company Number: US-SA-2014SA124738

PATIENT
  Age: 79 Year
  Sex: Male

DRUGS (1)
  1. NASACORT ALLERGY 24HR [Suspect]
     Active Substance: TRIAMCINOLONE ACETONIDE
     Indication: HYPERSENSITIVITY
     Dosage: DOSAGE: 2 SPRAY/NARE
     Route: 065
     Dates: start: 201408, end: 201409

REACTIONS (3)
  - Dry eye [Unknown]
  - Nasal congestion [Unknown]
  - Nasal discomfort [Unknown]
